APPROVED DRUG PRODUCT: LIPO-HEPIN
Active Ingredient: HEPARIN SODIUM
Strength: 40,000 UNITS/ML
Dosage Form/Route: INJECTABLE;INJECTION
Application: N017027 | Product #005
Applicant: 3M PHARMACEUTICALS INC
Approved: Approved Prior to Jan 1, 1982 | RLD: No | RS: No | Type: DISCN